FAERS Safety Report 19442252 (Version 1)
Quarter: 2021Q2

REPORT INFORMATION
  Report Type: Spontaneous
  Country: US (occurrence: US)
  Receive Date: 20210618
  Receipt Date: 20210618
  Transmission Date: 20210717
  Serious: Yes (Other)
  Sender: FDA-Public Use
  Company Number: None

PATIENT
  Age: 13 Year
  Sex: Male
  Weight: 75.8 kg

DRUGS (7)
  1. CEFTRIAXONE (ROCEPHIN) 1,000 MG IN SODIUM CHLORIDE 0.9 % 50 ML IVPB [Concomitant]
     Dates: start: 20210614, end: 20210616
  2. ALEMTUZUMAB (CAMPATH) 30 MG IN SODIUM CHLORIDE 0.9 % 300 ML INFUSION [Concomitant]
     Dates: start: 20210614, end: 20210615
  3. GLUTAMINE POWDER 4 G [Concomitant]
     Dates: start: 20210612
  4. URSODIOL (ACTIGALL) CAPSULE 300 MG [Concomitant]
     Dates: start: 20210612
  5. SODIUM PHOSPHATES [Suspect]
     Active Substance: SODIUM PHOSPHATE, DIBASIC, ANHYDROUS\SODIUM PHOSPHATE, DIBASIC, HEPTAHYDRATE\SODIUM PHOSPHATE, MONOBASIC, MONOHYDRATE
     Dosage: ?          OTHER FREQUENCY:ONCE;?
     Route: 040
     Dates: start: 20210614, end: 20210616
  6. GAMUNEX?C 15 MG [Concomitant]
     Dates: start: 20210611, end: 20210612
  7. ALLOPURINOL (ZYLOPRIM) TABLET 300 MG [Concomitant]
     Dates: start: 20210612

REACTIONS (3)
  - Urticaria [None]
  - Infusion related reaction [None]
  - Rash [None]

NARRATIVE: CASE EVENT DATE: 20210616
